FAERS Safety Report 5325037-X (Version None)
Quarter: 2007Q2

REPORT INFORMATION
  Report Type: 
  Country: None (occurrence: None)
  Receive Date: 20070515
  Receipt Date: 20070511
  Transmission Date: 20071010
  Serious: Yes (Other)
  Sender: FDA-Public Use
  Company Number: US-BRISTOL-MYERS SQUIBB COMPANY-13778154

PATIENT
  Sex: Female

DRUGS (1)
  1. BUSPAR [Suspect]
     Dates: start: 20041201

REACTIONS (2)
  - ACUTE RESPIRATORY FAILURE [None]
  - CHOKING [None]
